FAERS Safety Report 4315783-9 (Version None)
Quarter: 2004Q1

REPORT INFORMATION
  Report Type: 
  Country: None (occurrence: None)
  Receive Date: 20040310
  Receipt Date: 20040225
  Transmission Date: 20041129
  Serious: Yes (Other)
  Sender: FDA-Public Use
  Company Number: 2003116263

PATIENT
  Sex: Female
  Weight: 148.7798 kg

DRUGS (7)
  1. GLUCOTROL [Suspect]
     Indication: DIABETES MELLITUS
     Dosage: 20 MG (BID), ORAL
     Route: 048
     Dates: end: 20030801
  2. GLUCOTROL XL [Suspect]
     Indication: DIABETES MELLITUS
     Dosage: 20 MG (BID), ORAL
     Route: 048
     Dates: start: 20030801
  3. INSULIN [Suspect]
     Indication: DIABETES MELLITUS
     Dosage: 90 UNITS (BID)
  4. SIMVASTATIN [Concomitant]
  5. LEVOTHYROXINE SODIUM [Concomitant]
  6. ENALAPRIL MALEATE [Concomitant]
  7. LANSOPRAZOLE [Concomitant]

REACTIONS (9)
  - BLOOD GLUCOSE INCREASED [None]
  - HAEMOGLOBIN DECREASED [None]
  - HYPOGLYCAEMIA [None]
  - MUSCULAR WEAKNESS [None]
  - MYALGIA [None]
  - NEPHROPATHY [None]
  - POLLAKIURIA [None]
  - STOOL ANALYSIS ABNORMAL [None]
  - WEIGHT DECREASED [None]
